FAERS Safety Report 7311429-6 (Version None)
Quarter: 2011Q1

REPORT INFORMATION
  Report Type: 
  Country: None (occurrence: None)
  Receive Date: 20110216
  Receipt Date: 20110216
  Transmission Date: 20110831
  Serious: No
  Sender: FDA-Public Use
  Company Number: None

PATIENT
  Sex: Male
  Weight: 79.3795 kg

DRUGS (2)
  1. PROAIR HFA [Suspect]
     Indication: COUGH
     Dosage: 1-2 PUFFS Q 4-6 HOURS PO
     Route: 048
     Dates: start: 20110203, end: 20110208
  2. PROAIR HFA [Suspect]
     Indication: ASTHMA
     Dosage: 1-2 PUFFS Q 4-6 HOURS PO
     Route: 048
     Dates: start: 20110203, end: 20110208

REACTIONS (2)
  - INCORRECT DOSE ADMINISTERED [None]
  - DEVICE MALFUNCTION [None]
